FAERS Safety Report 16595338 (Version 1)
Quarter: 2019Q3

REPORT INFORMATION
  Report Type: Spontaneous
  Country: US (occurrence: US)
  Receive Date: 20190605
  Receipt Date: 20190605
  Transmission Date: 20191004
  Serious: No
  Sender: FDA-Public Use
  Company Number: None

PATIENT
  Sex: Female

DRUGS (1)
  1. LIOTHYRONINE/LEVOTHYROXINE [Suspect]
     Active Substance: LEVOTHYROXINE SODIUM\LIOTHYRONINE SODIUM

REACTIONS (3)
  - Product compounding quality issue [None]
  - Blood thyroid stimulating hormone increased [None]
  - Fatigue [None]

NARRATIVE: CASE EVENT DATE: 2018
